FAERS Safety Report 13884776 (Version 1)
Quarter: 2017Q3

REPORT INFORMATION
  Report Type: Spontaneous
  Country: US (occurrence: US)
  Receive Date: 20170821
  Receipt Date: 20170821
  Transmission Date: 20171127
  Serious: Yes (Other)
  Sender: FDA-Public Use
  Company Number: US-009507513-1708USA008121

PATIENT
  Age: 15 Year
  Sex: Female

DRUGS (9)
  1. ZOLINZA [Suspect]
     Active Substance: VORINOSTAT
     Indication: PALLIATIVE CARE
  2. ZOLINZA [Suspect]
     Active Substance: VORINOSTAT
     Indication: ALVEOLAR RHABDOMYOSARCOMA
     Dosage: 200 MG, BID; 14 DAYS PER CYCLE
     Route: 048
  3. HYDROXYUREA. [Suspect]
     Active Substance: HYDROXYUREA
     Indication: PALLIATIVE CARE
  4. HYDROXYUREA. [Suspect]
     Active Substance: HYDROXYUREA
     Indication: ALVEOLAR RHABDOMYOSARCOMA
     Dosage: UNK
  5. DECITABINE. [Suspect]
     Active Substance: DECITABINE
     Indication: METASTASES TO BONE
  6. DECITABINE. [Suspect]
     Active Substance: DECITABINE
     Indication: PALLIATIVE CARE
  7. ZOLINZA [Suspect]
     Active Substance: VORINOSTAT
     Indication: METASTASES TO BONE
  8. DECITABINE. [Suspect]
     Active Substance: DECITABINE
     Indication: ALVEOLAR RHABDOMYOSARCOMA
     Dosage: 20 MG/M2/D FOR 5 DAYS PER 4-WEEK CYCLE
  9. HYDROXYUREA. [Suspect]
     Active Substance: HYDROXYUREA
     Indication: METASTASES TO BONE

REACTIONS (2)
  - Off label use [Unknown]
  - Bone marrow failure [Unknown]
